FAERS Safety Report 6471287 (Version 3)
Quarter: 2019Q1

REPORT INFORMATION
  Report Type: Spontaneous
  Country: FR (occurrence: FR)
  Receive Date: 20071119
  Receipt Date: 20190213
  Transmission Date: 20190418
  Serious: Yes (Disabling)
  Sender: FDA-Public Use
  Company Number: FR-ELI_LILLY_AND_COMPANY-FR200711002204

PATIENT
  Age: 67 Year
  Sex: Male

DRUGS (5)
  1. CLASTOBAN [Concomitant]
     Active Substance: CLODRONIC ACID
     Indication: METASTASES TO BONE
     Dosage: UNK, UNKNOWN
     Route: 048
     Dates: start: 20050428, end: 20050503
  2. ZOMETA [Concomitant]
     Active Substance: ZOLEDRONIC ACID
     Dosage: UNK, UNKNOWN
     Route: 065
     Dates: start: 20050127, end: 20050428
  3. TAXOTERE [Concomitant]
     Active Substance: DOCETAXEL
     Indication: NON-SMALL CELL LUNG CANCER
     Dosage: UNK, UNKNOWN
     Route: 065
     Dates: start: 20050103, end: 20050419
  4. ZOMETA [Concomitant]
     Active Substance: ZOLEDRONIC ACID
     Dosage: UNK, UNKNOWN
     Route: 065
     Dates: start: 20050503, end: 20060315
  5. ALIMTA [Suspect]
     Active Substance: PEMETREXED DISODIUM
     Indication: NON-SMALL CELL LUNG CANCER
     Dosage: UNK, UNKNOWN
     Route: 042
     Dates: start: 20060209, end: 20070131

REACTIONS (1)
  - Osteonecrosis of jaw [Unknown]

NARRATIVE: CASE EVENT DATE: 20061206
